FAERS Safety Report 8052892-5 (Version None)
Quarter: 2012Q1

REPORT INFORMATION
  Report Type: 
  Country: None (occurrence: None)
  Receive Date: 20120118
  Receipt Date: 20120111
  Transmission Date: 20120608
  Serious: Yes (Hospitalization)
  Sender: FDA-Public Use
  Company Number: GB-GILEAD-2012-0049307

PATIENT
  Age: 90 Year
  Sex: Male

DRUGS (2)
  1. WARFARIN SODIUM [Concomitant]
     Route: 048
  2. AMBRISENTAN [Suspect]
     Indication: PRODUCT USED FOR UNKNOWN INDICATION
     Dosage: 2.5MG UNKNOWN
     Route: 048

REACTIONS (2)
  - ASTHENIA [None]
  - EPISTAXIS [None]
